FAERS Safety Report 17441896 (Version 1)
Quarter: 2020Q1

REPORT INFORMATION
  Report Type: Spontaneous
  Country: CN (occurrence: CN)
  Receive Date: 20200220
  Receipt Date: 20200220
  Transmission Date: 20200409
  Serious: Yes (Hospitalization)
  Sender: FDA-Public Use
  Company Number: CN-ASTRAZENECA-2017SE88885

PATIENT
  Age: 52 Year
  Sex: Male

DRUGS (3)
  1. EXENATIDE. [Interacting]
     Active Substance: EXENATIDE
     Route: 065
  2. WARFARIN [Interacting]
     Active Substance: WARFARIN
     Indication: ANTICOAGULANT THERAPY
     Route: 065
  3. EXENATIDE. [Suspect]
     Active Substance: EXENATIDE
     Route: 065

REACTIONS (3)
  - Drug interaction [Unknown]
  - International normalised ratio decreased [Recovered/Resolved]
  - Impaired gastric emptying [Unknown]
